FAERS Safety Report 4536992-X (Version None)
Quarter: 2004Q4

REPORT INFORMATION
  Report Type: 
  Country: None (occurrence: None)
  Receive Date: 20041220
  Receipt Date: 20041001
  Transmission Date: 20050328
  Serious: Yes (Death, Life-Threatening, Hospitalization, Other)
  Sender: FDA-Public Use
  Company Number: 2004110436

PATIENT
  Age: 88 Year
  Sex: Male

DRUGS (7)
  1. GABAPENTIN [Suspect]
     Indication: ARTHRALGIA
     Dosage: 300 MG (300 MG, 1 IN 1 D), ORAL
     Route: 048
     Dates: start: 20040924
  2. AMIODARONE (AMIODARONE) [Concomitant]
  3. FUROSEMIDE [Concomitant]
  4. TIOTROPIUM (TIOTROPIUM) [Concomitant]
  5. SALMETEROL (SALMETEROL) [Concomitant]
  6. SALBUTAMOL (SALBUTAMOL) [Concomitant]
  7. BECLOMETHASONE DIPROPIONATE [Concomitant]

REACTIONS (4)
  - FALL [None]
  - HYPOTENSION [None]
  - RENAL FAILURE ACUTE [None]
  - RESPIRATORY FAILURE [None]
